FAERS Safety Report 5474728-9 (Version None)
Quarter: 2007Q3

REPORT INFORMATION
  Report Type: 
  Country: None (occurrence: None)
  Receive Date: 20070928
  Receipt Date: 20070912
  Transmission Date: 20080115
  Serious: Yes (Hospitalization)
  Sender: FDA-Public Use
  Company Number: 161409ISR

PATIENT
  Age: 34 Year
  Sex: Male

DRUGS (1)
  1. PREDNISOLONE [Suspect]
     Indication: CROHN'S DISEASE
     Dosage: ORAL
     Route: 048

REACTIONS (1)
  - GALLBLADDER PERFORATION [None]
